FAERS Safety Report 9350577 (Version 1)
Quarter: 2013Q2

REPORT INFORMATION
  Report Type: Spontaneous
  Country: US (occurrence: US)
  Receive Date: 20130617
  Receipt Date: 20130617
  Transmission Date: 20140414
  Serious: No
  Sender: FDA-Public Use
  Company Number: US-009507513-1305USA003411

PATIENT
  Age: 78 Year
  Sex: Female

DRUGS (5)
  1. AZASITE [Suspect]
     Indication: BLEPHARITIS
     Dosage: UNK
     Route: 047
     Dates: start: 20130426, end: 2013
  2. DIGOXIN [Concomitant]
  3. NIASPAN [Concomitant]
  4. PROGESTERONE [Concomitant]
  5. ASPIRIN [Concomitant]
     Dosage: UNK

REACTIONS (2)
  - Ocular hyperaemia [Recovered/Resolved]
  - Eye irritation [Recovered/Resolved]
